FAERS Safety Report 17145856 (Version 3)
Quarter: 2020Q3

REPORT INFORMATION
  Report Type: Spontaneous
  Country: US (occurrence: US)
  Receive Date: 20191212
  Receipt Date: 20200811
  Transmission Date: 20201102
  Serious: No
  Sender: FDA-Public Use
  Company Number: US-GILEAD-2019-0441991

PATIENT
  Sex: Male

DRUGS (1)
  1. ATRIPLA [Suspect]
     Active Substance: EFAVIRENZ\EMTRICITABINE\TENOFOVIR DISOPROXIL FUMARATE
     Indication: PROPHYLAXIS AGAINST HIV INFECTION
     Dosage: UNK
     Route: 048
     Dates: start: 201703, end: 201712

REACTIONS (12)
  - Teeth brittle [Not Recovered/Not Resolved]
  - Tooth loss [Unknown]
  - Bone disorder [Unknown]
  - Anhedonia [Unknown]
  - Economic problem [Unknown]
  - Tooth fracture [Not Recovered/Not Resolved]
  - Pain [Unknown]
  - Off label use [Unknown]
  - Anxiety [Unknown]
  - Splenomegaly [Not Recovered/Not Resolved]
  - Bone density decreased [Unknown]
  - Emotional distress [Unknown]

NARRATIVE: CASE EVENT DATE: 2017
